FAERS Safety Report 7943134-7 (Version None)
Quarter: 2011Q4

REPORT INFORMATION
  Report Type: 
  Country: None (occurrence: None)
  Receive Date: 20111128
  Receipt Date: 20111115
  Transmission Date: 20120403
  Serious: Yes (Hospitalization)
  Sender: FDA-Public Use
  Company Number: PHHY2011TW96167

PATIENT
  Sex: Male

DRUGS (2)
  1. NEORAL [Suspect]
     Indication: IMMUNOSUPPRESSION
     Dosage: 400 MG
     Route: 048
     Dates: start: 20110929
  2. NEORAL [Suspect]
     Dosage: 450 MG, UNK
     Route: 048

REACTIONS (11)
  - PALPITATIONS [None]
  - NAUSEA [None]
  - CHEST DISCOMFORT [None]
  - GASTRIC ULCER HAEMORRHAGE [None]
  - VENTRICULAR HYPOKINESIA [None]
  - SINUS TACHYCARDIA [None]
  - COLD SWEAT [None]
  - HYPERKALAEMIA [None]
  - HAEMATEMESIS [None]
  - ACUTE MYOCARDIAL INFARCTION [None]
  - DYSPNOEA [None]
